FAERS Safety Report 9840537 (Version 2)
Quarter: 2014Q2

REPORT INFORMATION
  Report Type: Spontaneous
  Country: US (occurrence: US)
  Receive Date: 20140124
  Receipt Date: 20140411
  Transmission Date: 20141212
  Serious: No
  Sender: FDA-Public Use
  Company Number: US-PFIZER INC-2014021481

PATIENT
  Age: 84 Year
  Sex: Female

DRUGS (2)
  1. LYRICA [Suspect]
     Indication: ARTHRITIS
     Dosage: 200 MG, 3X/DAY
     Dates: end: 201403
  2. LYRICA [Suspect]
     Indication: BACK DISORDER

REACTIONS (1)
  - Pain [Unknown]
